FAERS Safety Report 7576931-0 (Version None)
Quarter: 2011Q2

REPORT INFORMATION
  Report Type: 
  Country: None (occurrence: None)
  Receive Date: 20110624
  Receipt Date: 20110624
  Transmission Date: 20111010
  Serious: Yes (Death)
  Sender: FDA-Public Use
  Company Number: None

PATIENT
  Age: 7 Year
  Sex: Female
  Weight: 25 kg

DRUGS (1)
  1. GRANISETRON [Suspect]
     Indication: CHEMOTHERAPY
     Dosage: 0.4 MG Q 12 HRS IV
     Route: 042
     Dates: start: 20100201, end: 20100629

REACTIONS (12)
  - DYSURIA [None]
  - URINARY RETENTION [None]
  - HEART RATE INCREASED [None]
  - ABDOMINAL PAIN [None]
  - CYANOSIS [None]
  - SMALL INTESTINAL HAEMORRHAGE [None]
  - VOMITING [None]
  - GRUNTING [None]
  - STAPHYLOCOCCAL INFECTION [None]
  - NAUSEA [None]
  - HYPOTENSION [None]
  - BLOOD PRESSURE DECREASED [None]
